FAERS Safety Report 5141117-6 (Version None)
Quarter: 2006Q4

REPORT INFORMATION
  Report Type: 
  Country: None (occurrence: None)
  Receive Date: 20061026
  Receipt Date: 20061020
  Transmission Date: 20070319
  Serious: Yes (Hospitalization)
  Sender: FDA-Public Use
  Company Number: 2006-04888

PATIENT
  Age: 46 Year
  Sex: Female

DRUGS (1)
  1. TRELSTAR DEPOT [Suspect]
     Indication: BREAST CANCER
     Dosage: 3.75 MG Q 28 DYAS, INTRAMUSCULAR
     Route: 030
     Dates: start: 20060502

REACTIONS (4)
  - GENERALISED OEDEMA [None]
  - LYMPHADENOPATHY [None]
  - PLEURAL EFFUSION [None]
  - WEIGHT INCREASED [None]
